FAERS Safety Report 6329854-9 (Version None)
Quarter: 2009Q3

REPORT INFORMATION
  Report Type: 
  Country: None (occurrence: None)
  Receive Date: 20090826
  Receipt Date: 20090821
  Transmission Date: 20100115
  Serious: Yes (Disabling)
  Sender: FDA-Public Use
  Company Number: PHHO2009NL10310

PATIENT
  Sex: Female
  Weight: 74 kg

DRUGS (2)
  1. CGS 20267 T30748+TAB [Suspect]
     Indication: BREAST CANCER
     Dosage: 2.5 MG, QD
     Route: 048
     Dates: start: 20090101, end: 20090820
  2. METOPROLOL [Concomitant]

REACTIONS (3)
  - EYE HAEMORRHAGE [None]
  - RETINAL VEIN OCCLUSION [None]
  - VISUAL ACUITY REDUCED [None]
